FAERS Safety Report 9630831 (Version 2)
Quarter: 2013Q4

REPORT INFORMATION
  Report Type: Report from Study
  Country: MX (occurrence: MX)
  Receive Date: 20131018
  Receipt Date: 20131018
  Transmission Date: 20140711
  Serious: Yes (Hospitalization)
  Sender: FDA-Public Use
  Company Number: MX-ROCHE-1265115

PATIENT
  Age: 57 Year
  Sex: Female
  Weight: 77 kg

DRUGS (11)
  1. XELODA [Suspect]
     Indication: BREAST CANCER METASTATIC
     Route: 048
     Dates: start: 2007, end: 2007
  2. XELODA [Suspect]
     Route: 048
     Dates: start: 201207
  3. HERCEPTIN [Suspect]
     Indication: BREAST CANCER METASTATIC
     Route: 042
     Dates: start: 2006, end: 2010
  4. HERCEPTIN [Suspect]
     Route: 042
     Dates: start: 201207
  5. CLONAZEPAM [Suspect]
     Indication: PRODUCT USED FOR UNKNOWN INDICATION
     Route: 048
     Dates: start: 20130907
  6. ZOLEDRONIC ACID [Concomitant]
     Indication: BREAST CANCER RECURRENT
     Route: 042
     Dates: start: 2006, end: 201003
  7. TAMOXIFEN [Concomitant]
     Indication: BREAST CANCER
     Route: 048
  8. ANASTROZOLE [Concomitant]
     Indication: BREAST CANCER
     Route: 048
  9. LETROZOLE [Concomitant]
     Indication: BREAST CANCER METASTATIC
     Route: 048
  10. GABAPENTIN [Concomitant]
     Indication: PROPHYLAXIS
     Route: 048
  11. TRAMADOL [Concomitant]
     Indication: PROPHYLAXIS
     Route: 048

REACTIONS (19)
  - Medication error [Unknown]
  - Hyperglycaemia [Recovered/Resolved]
  - Speech disorder [Recovered/Resolved]
  - Diarrhoea [Recovered/Resolved]
  - Dehydration [Recovered/Resolved]
  - Vomiting [Recovered/Resolved]
  - Paraesthesia [Not Recovered/Not Resolved]
  - Burning sensation [Recovered/Resolved]
  - Fingerprint loss [Not Recovered/Not Resolved]
  - Nail disorder [Not Recovered/Not Resolved]
  - Skin hyperpigmentation [Not Recovered/Not Resolved]
  - Dysuria [Recovering/Resolving]
  - Thrombosis [Not Recovered/Not Resolved]
  - Lymphadenopathy [Not Recovered/Not Resolved]
  - Jaw disorder [Recovered/Resolved]
  - Spinal compression fracture [Not Recovered/Not Resolved]
  - Sciatic nerve injury [Not Recovered/Not Resolved]
  - Bladder disorder [Recovering/Resolving]
  - Metastasis [Not Recovered/Not Resolved]
